FAERS Safety Report 4970163-8 (Version None)
Quarter: 2006Q2

REPORT INFORMATION
  Report Type: 
  Country: None (occurrence: None)
  Receive Date: 20060412
  Receipt Date: 20041222
  Transmission Date: 20061013
  Serious: Yes (Hospitalization, Other)
  Sender: FDA-Public Use
  Company Number: PHHO2004CA18347

PATIENT
  Age: 64 Year
  Sex: Female

DRUGS (2)
  1. ZELNORM [Suspect]
     Dosage: 6 MG, BID
     Route: 048
     Dates: start: 20040801, end: 20050101
  2. METAMUCIL [Concomitant]

REACTIONS (3)
  - ABDOMINAL PAIN [None]
  - INTESTINAL OBSTRUCTION [None]
  - VOLVULUS [None]
